FAERS Safety Report 5059460-8 (Version None)
Quarter: 2006Q2

REPORT INFORMATION
  Report Type: 
  Country: None (occurrence: None)
  Receive Date: 20060629
  Receipt Date: 20060310
  Transmission Date: 20061013
  Serious: No
  Sender: FDA-Public Use
  Company Number: PHEH2006US03313

PATIENT
  Sex: Male

DRUGS (2)
  1. ENABLEX [Suspect]
     Indication: AUTOMATIC BLADDER
     Dosage: ORAL
     Route: 048
  2. COUMADIN [Suspect]
     Dosage: 10 TO 15 MG; 20 MG 4 X WEEKLY AND 25 MG 3 X WEEKLY

REACTIONS (1)
  - DRUG INTERACTION [None]
